FAERS Safety Report 21246161 (Version 2)
Quarter: 2022Q3

REPORT INFORMATION
  Report Type: Spontaneous
  Country: NL (occurrence: NL)
  Receive Date: 20220824
  Receipt Date: 20220902
  Transmission Date: 20221027
  Serious: Yes (Other)
  Sender: FDA-Public Use
  Company Number: None

PATIENT
  Sex: Male
  Weight: 72 kg

DRUGS (1)
  1. DEXAMETHASONE [Suspect]
     Active Substance: DEXAMETHASONE
     Indication: Constipation
     Dosage: DEXAMETHASON / BRAND NAME NOT SPECIFIED ,  THERAPY  END DATE : ASKU
     Dates: start: 2022

REACTIONS (1)
  - Loss of consciousness [Recovered/Resolved]
